FAERS Safety Report 7927985-0 (Version None)
Quarter: 2011Q4

REPORT INFORMATION
  Report Type: 
  Country: None (occurrence: None)
  Receive Date: 20111118
  Receipt Date: 20111109
  Transmission Date: 20120403
  Serious: Yes (Hospitalization, Other)
  Sender: FDA-Public Use
  Company Number: US-BAYER-201034647NA

PATIENT
  Age: 17 Year
  Sex: Female
  Weight: 73 kg

DRUGS (14)
  1. ANTIBIOTICS [Concomitant]
     Indication: PRODUCT USED FOR UNKNOWN INDICATION
     Dosage: UNK UNK, PRN
  2. MORPHINE [Concomitant]
     Indication: PRODUCT USED FOR UNKNOWN INDICATION
     Dosage: UNK
     Dates: end: 20080911
  3. IBUPROFEN [Concomitant]
     Dosage: DAILY DOSE 500 MG
     Route: 048
     Dates: start: 20080826
  4. PENICILLIN [Concomitant]
     Dosage: UNK
     Dates: start: 20080908
  5. MOTRIN [Concomitant]
     Dosage: 800 MG, UNK
  6. SINGULAIR [Concomitant]
     Indication: MULTIPLE ALLERGIES
     Dosage: UNK
     Dates: start: 20000101, end: 20080101
  7. I.V. SOLUTIONS [Concomitant]
     Indication: PRODUCT USED FOR UNKNOWN INDICATION
     Dosage: UNK
     Route: 042
     Dates: end: 20080911
  8. SILVADENE [Concomitant]
     Indication: PRODUCT USED FOR UNKNOWN INDICATION
  9. PENICILLIN [Concomitant]
     Dosage: UNK
     Dates: start: 20080826
  10. YAZ [Suspect]
     Indication: OVARIAN CYST
     Dosage: UNK
     Dates: start: 20080401, end: 20080901
  11. CLARITIN [Concomitant]
     Indication: MULTIPLE ALLERGIES
     Dosage: UNK
     Dates: start: 20080101, end: 20090101
  12. ALLEGRA [Concomitant]
     Indication: MULTIPLE ALLERGIES
     Dosage: UNK
     Dates: start: 20080101, end: 20090101
  13. PROTONIX [Concomitant]
     Indication: PRODUCT USED FOR UNKNOWN INDICATION
  14. YASMIN [Suspect]
     Indication: OVARIAN CYST
     Dosage: UNK
     Dates: start: 20080501

REACTIONS (4)
  - ABDOMINAL PAIN UPPER [None]
  - PULMONARY EMBOLISM [None]
  - CHEST PAIN [None]
  - DYSPNOEA [None]
